FAERS Safety Report 9319460 (Version 3)
Quarter: 2014Q2

REPORT INFORMATION
  Report Type: Spontaneous
  Country: US (occurrence: US)
  Receive Date: 20130530
  Receipt Date: 20140620
  Transmission Date: 20141212
  Serious: Yes (Hospitalization)
  Sender: FDA-Public Use
  Company Number: US-GLAXOSMITHKLINE-A0984805A

PATIENT
  Age: 47 Year
  Sex: Female

DRUGS (2)
  1. FLOLAN [Suspect]
     Indication: PULMONARY ARTERIAL HYPERTENSION
     Dosage: 36NGKM CONTINUOUS
     Route: 042
     Dates: start: 20010710
  2. LETAIRIS [Concomitant]

REACTIONS (4)
  - Dyspnoea [Unknown]
  - Oxygen saturation abnormal [Unknown]
  - Medical observation [Unknown]
  - Investigation [Unknown]
